FAERS Safety Report 10009422 (Version 1)
Quarter: 2014Q1

REPORT INFORMATION
  Report Type: Spontaneous
  Country: US (occurrence: US)
  Receive Date: 20140312
  Receipt Date: 20140312
  Transmission Date: 20141002
  Serious: No
  Sender: FDA-Public Use
  Company Number: US-INCYTE CORPORATION-2012IN001544

PATIENT
  Age: 75 Year
  Sex: Male

DRUGS (7)
  1. JAKAFI [Suspect]
     Indication: SPLENOMEGALY
     Dosage: 5 MG, BID
  2. POTASSIUM [Concomitant]
     Dosage: 10 MEQ, QD
  3. CARVEDILOL [Concomitant]
     Dosage: 3.125 MG, BID
  4. SOTALOL [Concomitant]
     Dosage: 80 MG, BID
  5. FUROSEMIDE [Concomitant]
     Dosage: 40 MG, QD
  6. ENALAPRIL [Concomitant]
     Dosage: 2.5 MG, HS
  7. PANTOPRAZOLE [Concomitant]
     Dosage: 40 MG, QD

REACTIONS (2)
  - Rash [Unknown]
  - Skin irritation [Unknown]
